FAERS Safety Report 10220611 (Version 1)
Quarter: 2014Q2

REPORT INFORMATION
  Report Type: Spontaneous
  Country: US (occurrence: None)
  Receive Date: 20140604
  Receipt Date: 20140604
  Transmission Date: 20141212
  Serious: Yes (Other)
  Sender: FDA-Public Use
  Company Number: 001742849A

PATIENT
  Age: 77 Year
  Sex: Female

DRUGS (3)
  1. PROACTIV DARK SPOT CORRECTOR [Suspect]
     Indication: ACNE
     Dosage: ONCE DAILY DERMAL
     Route: 061
     Dates: start: 20140330, end: 20140331
  2. TRAMADOL [Concomitant]
  3. VITAMIN D [Concomitant]

REACTIONS (1)
  - Swelling face [None]
